FAERS Safety Report 9084598 (Version 1)
Quarter: 2013Q1

REPORT INFORMATION
  Report Type: Report from Study
  Country: US (occurrence: US)
  Receive Date: 20130131
  Receipt Date: 20130131
  Transmission Date: 20140127
  Serious: No
  Sender: FDA-Public Use
  Company Number: US-ABBOTT-12P-163-0986554-00

PATIENT
  Age: 52 Year
  Sex: Female

DRUGS (4)
  1. HUMIRA [Suspect]
     Indication: RHEUMATOID ARTHRITIS
  2. METHOTREXATE [Concomitant]
     Indication: RHEUMATOID ARTHRITIS
     Dosage: 8 TABS A WEEK, STARTED WITH HUMIRA
  3. CYMBALTA [Concomitant]
     Indication: PAIN
  4. FOLIC ACID [Concomitant]
     Indication: ANAEMIA
     Dosage: SAME TIME AS HUMIRA

REACTIONS (2)
  - Drug dose omission [Unknown]
  - Injection site pain [Recovered/Resolved]
